FAERS Safety Report 6255061-4 (Version None)
Quarter: 2009Q3

REPORT INFORMATION
  Report Type: 
  Country: None (occurrence: None)
  Receive Date: 20090702
  Receipt Date: 20090624
  Transmission Date: 20100115
  Serious: Yes (Death)
  Sender: FDA-Public Use
  Company Number: US-AVENTIS-200915519US

PATIENT
  Sex: Male

DRUGS (3)
  1. TAXOTERE [Suspect]
     Indication: HEAD AND NECK CANCER
     Dosage: DOSE: UNK
     Route: 042
  2. CISPLATIN [Suspect]
     Indication: HEAD AND NECK CANCER
     Dosage: DOSE: UNK
  3. FLUOROURACIL [Suspect]
     Indication: HEAD AND NECK CANCER
     Dosage: DOSE: UNK

REACTIONS (1)
  - DEATH [None]
